FAERS Safety Report 10640691 (Version 2)
Quarter: 2015Q1

REPORT INFORMATION
  Report Type: Spontaneous
  Country: US (occurrence: US)
  Receive Date: 20141209
  Receipt Date: 20150211
  Transmission Date: 20150720
  Serious: Yes (Other)
  Sender: FDA-Public Use
  Company Number: US-AMGEN-USASP2014093753

PATIENT
  Age: 67 Year
  Sex: Female

DRUGS (1)
  1. PROLIA [Suspect]
     Active Substance: DENOSUMAB
     Indication: OSTEOPOROSIS
     Dosage: UNK
     Route: 065
     Dates: start: 201312

REACTIONS (17)
  - Cyst [Unknown]
  - Erythema [Unknown]
  - Pain [Unknown]
  - Wound drainage [Not Recovered/Not Resolved]
  - Cellulitis [Unknown]
  - Swelling [Unknown]
  - Seroma [Unknown]
  - Pruritus [Unknown]
  - Fat necrosis [Unknown]
  - Impaired healing [Unknown]
  - Skin exfoliation [Unknown]
  - Rash [Unknown]
  - Skin hypertrophy [Unknown]
  - Mass [Unknown]
  - Scar [Unknown]
  - Haematoma [Unknown]
  - Eyelid exfoliation [Unknown]

NARRATIVE: CASE EVENT DATE: 2014
